FAERS Safety Report 19666557 (Version 4)
Quarter: 2022Q2

REPORT INFORMATION
  Report Type: Report from Study
  Country: JP (occurrence: JP)
  Receive Date: 20210806
  Receipt Date: 20220520
  Transmission Date: 20220721
  Serious: Yes (Death, Other)
  Sender: FDA-Public Use
  Company Number: JP-TAKEDA-2021TJP067955

PATIENT
  Age: 80 Year
  Sex: Male
  Weight: 55.4 kg

DRUGS (5)
  1. VONOPRAZAN FUMARATE [Suspect]
     Active Substance: VONOPRAZAN FUMARATE
     Indication: Gastritis
     Dosage: 20 MILLIGRAM
     Route: 048
     Dates: start: 20201218
  2. VEDOLIZUMAB [Suspect]
     Active Substance: VEDOLIZUMAB
     Indication: Colitis ulcerative
     Dosage: UNK
     Route: 065
  3. PENTASA [Suspect]
     Active Substance: MESALAMINE
     Indication: Colitis ulcerative
     Dosage: 4000 MILLIGRAM
     Route: 048
     Dates: start: 20161005
  4. ALBUMIN TANNATE [Suspect]
     Active Substance: ALBUMIN TANNATE
     Indication: Colitis ulcerative
     Dosage: 3 GRAM
     Route: 048
     Dates: start: 20150907
  5. MIYA-BM [Suspect]
     Active Substance: CLOSTRIDIUM BUTYRICUM SPORES STRAIN M-55
     Indication: Colitis ulcerative
     Dosage: 3 GRAM
     Route: 048
     Dates: start: 20151002

REACTIONS (1)
  - Metastases to lung [Fatal]

NARRATIVE: CASE EVENT DATE: 20200916
